FAERS Safety Report 6843031-4 (Version None)
Quarter: 2010Q3

REPORT INFORMATION
  Report Type: 
  Country: None (occurrence: None)
  Receive Date: 20100709
  Receipt Date: 20100628
  Transmission Date: 20110219
  Serious: Yes (Hospitalization)
  Sender: FDA-Public Use
  Company Number: 7009260

PATIENT
  Age: 48 Year
  Sex: Female

DRUGS (8)
  1. REBIF [Suspect]
     Indication: SECONDARY PROGRESSIVE MULTIPLE SCLEROSIS
     Dosage: SUBCUTANEOUS
     Route: 058
  2. AMANTADINE HCL [Suspect]
     Indication: SECONDARY PROGRESSIVE MULTIPLE SCLEROSIS
     Dosage: ORAL
     Route: 048
  3. NEURONTIN [Suspect]
     Indication: NEURALGIA
     Dosage: ORAL
     Route: 048
  4. CYMBALTA [Suspect]
     Indication: DEPRESSION
     Dosage: ORAL
     Route: 048
  5. ALDACTAZINE (ALDACTAZINE) [Concomitant]
  6. ACETAMINOPHEN [Concomitant]
  7. NEXIUM [Concomitant]
  8. ZOLPIDEM [Concomitant]

REACTIONS (9)
  - ATAXIA [None]
  - DYSARTHRIA [None]
  - ENCEPHALOPATHY [None]
  - HALLUCINATION, VISUAL [None]
  - KERATITIS HERPETIC [None]
  - MYOCLONUS [None]
  - RENAL FAILURE [None]
  - STATUS EPILEPTICUS [None]
  - VISION BLURRED [None]
